FAERS Safety Report 11107729 (Version 1)
Quarter: 2015Q2

REPORT INFORMATION
  Report Type: Report from Study
  Country: US (occurrence: US)
  Receive Date: 20150512
  Receipt Date: 20150512
  Transmission Date: 20150821
  Serious: Yes (Other)
  Sender: FDA-Public Use
  Company Number: US-BAXTER-2015BAX024957

PATIENT
  Sex: Female

DRUGS (1)
  1. HYQVIA [Suspect]
     Active Substance: HUMAN IMMUNOGLOBULIN G\HYALURONIDASE RECOMBINANT HUMAN
     Indication: IMMUNODEFICIENCY COMMON VARIABLE
     Dosage: FIRST INFUSION
     Route: 058
     Dates: start: 20150430

REACTIONS (4)
  - Asthenia [Unknown]
  - Fatigue [Unknown]
  - Small intestinal bacterial overgrowth [Unknown]
  - Feeling abnormal [Unknown]
